FAERS Safety Report 7239903-1 (Version None)
Quarter: 2011Q1

REPORT INFORMATION
  Report Type: 
  Country: None (occurrence: None)
  Receive Date: 20110123
  Receipt Date: 20101108
  Transmission Date: 20110831
  Serious: No
  Sender: FDA-Public Use
  Company Number: US-MYLANLABS-2010S1018518

PATIENT
  Age: 85 Year
  Sex: Male

DRUGS (3)
  1. SALINEX NASAL [Concomitant]
     Indication: HYPERSENSITIVITY
     Route: 055
  2. FINASTERIDE [Suspect]
     Indication: URINARY INCONTINENCE
     Dates: start: 20080101
  3. FINASTERIDE [Suspect]
     Indication: PROSTATOMEGALY
     Dates: start: 20080101

REACTIONS (3)
  - BLOOD TESTOSTERONE DECREASED [None]
  - PAIN [None]
  - MASS [None]
